FAERS Safety Report 19674932 (Version 1)
Quarter: 2021Q3

REPORT INFORMATION
  Report Type: Spontaneous
  Country: US (occurrence: US)
  Receive Date: 20210809
  Receipt Date: 20210809
  Transmission Date: 20211014
  Serious: Yes (Hospitalization)
  Sender: FDA-Public Use
  Company Number: None

PATIENT
  Age: 66 Year
  Sex: Male
  Weight: 107 kg

DRUGS (11)
  1. LEVOFLOXACIN (LEVAQUIN) TABLET [Concomitant]
     Dates: start: 20210628, end: 20210710
  2. ANAKINRA (KINERET) SUBCUTANEOUS INJECTION 100 MG [Concomitant]
     Dates: start: 20210603, end: 20210606
  3. TECARTUS [Suspect]
     Active Substance: BREXUCABTAGENE AUTOLEUCEL
     Indication: MANTLE CELL LYMPHOMA
     Dosage: ?          OTHER FREQUENCY:ONCE;?
     Route: 041
     Dates: start: 20210528, end: 20210528
  4. ACYCLOVIR (ZOVIRAX) [Concomitant]
     Dates: start: 20210528, end: 20210714
  5. PIPERACILLIN?TAZOBACTAM (ZOSYN) 3.375 GRAM/50 ML DEXTROSE IVPB [Concomitant]
     Dates: start: 20210529, end: 20210604
  6. INSULIN LISPRO [Concomitant]
     Active Substance: INSULIN LISPRO
     Dates: start: 20210521, end: 20210714
  7. DECADRON [Concomitant]
     Active Substance: DEXAMETHASONE
     Dates: start: 20210531, end: 20210714
  8. FILGRASTIM (NEUPOGEN). [Concomitant]
     Active Substance: FILGRASTIM (NEUPOGEN)
     Dates: start: 20210601, end: 20210714
  9. ATOVAQUONE (MEPRON) 750 MG/5 ML ORAL SUSPENSION [Concomitant]
     Dates: start: 20210509, end: 20210714
  10. KEPPRA [Concomitant]
     Active Substance: LEVETIRACETAM
     Dates: start: 20210528, end: 20210714
  11. INSULIN GLARGINE (LANTUS) INJECTION [Concomitant]
     Dates: start: 20210521, end: 20210714

REACTIONS (7)
  - Cytomegalovirus viraemia [None]
  - Dementia [None]
  - Cognitive disorder [None]
  - Hyperglycaemia [None]
  - Immune effector cell-associated neurotoxicity syndrome [None]
  - Cytokine release syndrome [None]
  - Urinary tract infection [None]

NARRATIVE: CASE EVENT DATE: 20210528
